FAERS Safety Report 16730830 (Version 1)
Quarter: 2019Q4

REPORT INFORMATION
  Report Type: Spontaneous
  Country: US (occurrence: US)
  Receive Date: 20190822
  Receipt Date: 20190822
  Transmission Date: 20200122
  Serious: Yes (Other)
  Sender: FDA-Public Use
  Company Number: None

PATIENT
  Age: 59 Year
  Sex: Male
  Weight: 78.75 kg

DRUGS (8)
  1. AMLODIPINE 5 [Concomitant]
     Dates: start: 20130901
  2. LYRICA 200 [Concomitant]
     Dates: start: 20160204
  3. BACLOFEN 10 [Concomitant]
     Active Substance: BACLOFEN
     Dates: start: 20170801
  4. TRAMADOL. [Suspect]
     Active Substance: TRAMADOL
     Indication: PAIN
     Route: 048
  5. LIDOCAINE 5% PATCH [Concomitant]
     Active Substance: LIDOCAINE
     Dates: start: 20110801
  6. TERBINAFINE. [Suspect]
     Active Substance: TERBINAFINE
     Indication: FUNGAL INFECTION
     Route: 048
     Dates: start: 20190809, end: 20190813
  7. IBUPROFEN 800 [Concomitant]
     Active Substance: IBUPROFEN
     Dates: start: 20130101
  8. LISINOPRIL 40 [Concomitant]
     Active Substance: LISINOPRIL
     Dates: start: 20130801

REACTIONS (3)
  - Drug interaction [None]
  - Product use complaint [None]
  - Withdrawal syndrome [None]

NARRATIVE: CASE EVENT DATE: 20190812
